FAERS Safety Report 17594011 (Version 1)
Quarter: 2020Q1

REPORT INFORMATION
  Report Type: Spontaneous
  Country: US (occurrence: US)
  Receive Date: 20200327
  Receipt Date: 20200327
  Transmission Date: 20200409
  Serious: Yes (Other)
  Sender: FDA-Public Use
  Company Number: US-ASTRAZENECA-2020SE42070

PATIENT
  Sex: Male
  Weight: 109.8 kg

DRUGS (1)
  1. BYDUREON BCISE [Suspect]
     Active Substance: EXENATIDE
     Indication: TYPE 2 DIABETES MELLITUS
     Route: 058

REACTIONS (5)
  - Gangrene [Unknown]
  - Device leakage [Unknown]
  - Injection site bruising [Unknown]
  - Injection site mass [Unknown]
  - Intentional device misuse [Unknown]
